FAERS Safety Report 14401272 (Version 10)
Quarter: 2020Q1

REPORT INFORMATION
  Report Type: Report from Study
  Country: CA (occurrence: CA)
  Receive Date: 20180117
  Receipt Date: 20200318
  Transmission Date: 20200409
  Serious: Yes (Other)
  Sender: FDA-Public Use
  Company Number: PHHY2017CA170126

PATIENT
  Age: 71 Year
  Sex: Male

DRUGS (3)
  1. SANDOSTATIN [Suspect]
     Active Substance: OCTREOTIDE ACETATE
     Indication: CARCINOID TUMOUR
     Dosage: 30 MG, QMO
     Route: 030
     Dates: start: 20170814
  2. FORXIGA [Concomitant]
     Active Substance: DAPAGLIFLOZIN
     Indication: HYPOGLYCAEMIA
     Dosage: 10 MG, QD
     Route: 048
     Dates: start: 2017
  3. HUMULIN N [Concomitant]
     Active Substance: INSULIN HUMAN
     Indication: PRODUCT USED FOR UNKNOWN INDICATION
     Dosage: 8 DF QD, (1X BEFORE BEDTIME)
     Route: 058

REACTIONS (8)
  - Fatigue [Unknown]
  - Pruritus [Recovered/Resolved]
  - Blood glucose abnormal [Unknown]
  - Blood pressure increased [Unknown]
  - Blood pressure systolic increased [Unknown]
  - Asthenia [Unknown]
  - Neoplasm progression [Not Recovered/Not Resolved]
  - Loss of personal independence in daily activities [Unknown]

NARRATIVE: CASE EVENT DATE: 20171114
